FAERS Safety Report 8569857-7 (Version None)
Quarter: 2012Q3

REPORT INFORMATION
  Report Type: 
  Country: None (occurrence: None)
  Receive Date: 20120803
  Receipt Date: 20120606
  Transmission Date: 20120928
  Serious: No
  Sender: FDA-Public Use
  Company Number: US-ABBOTT-12P-163-0908632-00

PATIENT
  Sex: Male

DRUGS (4)
  1. ASPIRIN [Concomitant]
     Indication: PRODUCT USED FOR UNKNOWN INDICATION
  2. LISINOPRIL [Concomitant]
     Indication: HYPERTENSION
     Dosage: NOT REPORTED
  3. NIASPAN [Suspect]
     Indication: BLOOD CHOLESTEROL INCREASED
     Dates: start: 20111101
  4. NIASPAN [Suspect]

REACTIONS (4)
  - FLUSHING [None]
  - FEELING HOT [None]
  - ERYTHEMA [None]
  - INAPPROPRIATE SCHEDULE OF DRUG ADMINISTRATION [None]
